FAERS Safety Report 15433535 (Version 6)
Quarter: 2020Q4

REPORT INFORMATION
  Report Type: Report from Study
  Country: DE (occurrence: DE)
  Receive Date: 20180927
  Receipt Date: 20201009
  Transmission Date: 20210113
  Serious: Yes (Hospitalization)
  Sender: FDA-Public Use
  Company Number: DE-ROCHE-2188828

PATIENT
  Age: 85 Year
  Sex: Male
  Weight: 83 kg

DRUGS (14)
  1. ASPIRIN. [Concomitant]
     Active Substance: ASPIRIN
  2. VEMURAFENIB. [Suspect]
     Active Substance: VEMURAFENIB
     Route: 048
     Dates: start: 20180809, end: 20180816
  3. HCTZ [Concomitant]
     Active Substance: HYDROCHLOROTHIAZIDE
  4. PRAVASTATIN. [Concomitant]
     Active Substance: PRAVASTATIN
  5. VEMURAFENIB. [Suspect]
     Active Substance: VEMURAFENIB
     Indication: MALIGNANT MELANOMA
     Dosage: DATE OF LAST DOSE PRIOR (480 MG) TO SAE/AESI 20/SEP/2018
     Route: 048
     Dates: start: 20180712, end: 20180727
  6. COBIMETINIB. [Suspect]
     Active Substance: COBIMETINIB
     Indication: MALIGNANT MELANOMA
     Dosage: DATE OF LAST DOSE PRIOR TO SAE/AESI 19/SEP/2018.
     Route: 048
     Dates: start: 20180712, end: 20180727
  7. VEMURAFENIB. [Suspect]
     Active Substance: VEMURAFENIB
     Route: 048
     Dates: start: 20180906, end: 20180920
  8. METOPROLOL. [Concomitant]
     Active Substance: METOPROLOL
  9. VEMURAFENIB. [Suspect]
     Active Substance: VEMURAFENIB
     Route: 048
     Dates: start: 20180816, end: 20180829
  10. COBIMETINIB. [Suspect]
     Active Substance: COBIMETINIB
     Route: 048
     Dates: start: 20180809, end: 20180829
  11. CANDESARTAN. [Concomitant]
     Active Substance: CANDESARTAN
  12. COBIMETINIB. [Suspect]
     Active Substance: COBIMETINIB
     Route: 048
     Dates: start: 20180906, end: 20180920
  13. AMLODIPIN [Concomitant]
     Active Substance: AMLODIPINE BESYLATE
  14. METFORMIN [Concomitant]
     Active Substance: METFORMIN HYDROCHLORIDE

REACTIONS (1)
  - Troponin T increased [Recovered/Resolved]

NARRATIVE: CASE EVENT DATE: 20180920
